FAERS Safety Report 18062219 (Version 1)
Quarter: 2020Q3

REPORT INFORMATION
  Report Type: Spontaneous
  Country: MY (occurrence: MY)
  Receive Date: 20200724
  Receipt Date: 20200724
  Transmission Date: 20201103
  Serious: Yes (Other)
  Sender: FDA-Public Use
  Company Number: MY-SUN PHARMACEUTICAL INDUSTRIES LTD-2020R1-254425

PATIENT
  Age: 22 Year
  Sex: Female

DRUGS (4)
  1. ARSENIC TRIOXIDE. [Concomitant]
     Active Substance: ARSENIC TRIOXIDE
     Indication: PROPHYLAXIS
     Dosage: UNK (0.15 MG/KG FOR A TOTAL OF 25 DOSES)
     Route: 042
  2. DEXAMETHASONE. [Suspect]
     Active Substance: DEXAMETHASONE
     Indication: PROPHYLAXIS
     Dosage: 10 MILLIGRAM, BID
     Route: 065
  3. IDARUBICIN [Concomitant]
     Active Substance: IDARUBICIN
     Indication: PROPHYLAXIS
     Dosage: UNK (3 DOSES)
     Route: 042
  4. ALL?TRANS?RETINOIC?ACID [Concomitant]
     Active Substance: TRETINOIN
     Indication: PROPHYLAXIS
     Dosage: 45 MILLIGRAM/SQ. METER, DAILY
     Route: 048

REACTIONS (2)
  - Respiratory failure [Recovered/Resolved]
  - Neutropenic sepsis [Recovered/Resolved]
